FAERS Safety Report 6546576-X (Version None)
Quarter: 2010Q1

REPORT INFORMATION
  Report Type: 
  Country: None (occurrence: None)
  Receive Date: 20100122
  Receipt Date: 20100114
  Transmission Date: 20100710
  Serious: Yes (Hospitalization)
  Sender: FDA-Public Use
  Company Number: FR-PFIZER INC-2010005217

PATIENT
  Age: 57 Year
  Sex: Female

DRUGS (3)
  1. CAMPTOSAR [Suspect]
     Indication: METASTASES TO LIVER
     Dosage: UNK
     Route: 042
     Dates: start: 20090202, end: 20090301
  2. FLUOROURACIL [Suspect]
     Indication: METASTASES TO LIVER
     Dosage: UNK
     Route: 042
     Dates: start: 20090202, end: 20090301
  3. ELOXATIN [Suspect]
     Indication: METASTASES TO LIVER
     Dosage: 85 MG/M2, CYCLIC, EVERY 14 DAYS/MONTH
     Route: 042
     Dates: start: 20090202, end: 20090301

REACTIONS (1)
  - PARAPARESIS [None]
